FAERS Safety Report 4376349-8 (Version None)
Quarter: 2004Q2

REPORT INFORMATION
  Report Type: 
  Country: None (occurrence: None)
  Receive Date: 20040612
  Receipt Date: 20040602
  Transmission Date: 20050107
  Serious: Yes (Hospitalization)
  Sender: FDA-Public Use
  Company Number: US-JNJFOC-20040600884

PATIENT
  Sex: Male

DRUGS (13)
  1. INFLIXIMAB [Suspect]
     Indication: RHEUMATOID ARTHRITIS
     Route: 042
  2. METHOTREXATE [Suspect]
     Indication: DRUG USE FOR UNKNOWN INDICATION
  3. LISINOPRIL [Suspect]
     Indication: DRUG USE FOR UNKNOWN INDICATION
  4. ATENOLOL [Suspect]
     Indication: DRUG USE FOR UNKNOWN INDICATION
  5. NEXIUM [Suspect]
     Indication: DRUG USE FOR UNKNOWN INDICATION
     Route: 050
  6. PRENATAL VITAMIN [Suspect]
  7. PRENATAL VITAMIN [Suspect]
  8. PRENATAL VITAMIN [Suspect]
  9. PRENATAL VITAMIN [Suspect]
  10. PRENATAL VITAMIN [Suspect]
  11. PRENATAL VITAMIN [Suspect]
  12. PRENATAL VITAMIN [Suspect]
  13. PRENATAL VITAMIN [Suspect]
     Indication: DRUG USE FOR UNKNOWN INDICATION

REACTIONS (1)
  - PNEUMOCYSTIS CARINII PNEUMONIA [None]
